FAERS Safety Report 7018154-X (Version None)
Quarter: 2010Q3

REPORT INFORMATION
  Report Type: 
  Country: None (occurrence: None)
  Receive Date: 20100928
  Receipt Date: 20100920
  Transmission Date: 20110219
  Serious: Yes (Death, Life-Threatening)
  Sender: FDA-Public Use
  Company Number: GB-ROCHE-711443

PATIENT
  Age: 73 Year
  Sex: Female
  Weight: 50 kg

DRUGS (2)
  1. CAPECITABINE [Suspect]
     Indication: RECTAL CANCER
     Dosage: DRUG WITHDRAWN
     Route: 048
     Dates: start: 20100419, end: 20100421
  2. BECLOMETHASONE DIPROPIONATE [Concomitant]
     Dosage: FORM: UNKNOWN
     Route: 055

REACTIONS (2)
  - DIABETIC KETOACIDOSIS [None]
  - NEUTROPENIC SEPSIS [None]
